FAERS Safety Report 26128607 (Version 2)
Quarter: 2025Q4

REPORT INFORMATION
  Report Type: Report from Study
  Country: US (occurrence: US)
  Receive Date: 20251207
  Receipt Date: 20251208
  Transmission Date: 20260118
  Serious: Yes (Hospitalization, Other)
  Sender: ABBVIE
  Company Number: US-ABBVIE-6573685

PATIENT
  Age: 64 Year
  Sex: Female
  Weight: 48.987 kg

DRUGS (10)
  1. ARMOUR THYROID [Suspect]
     Active Substance: THYROID, PORCINE
     Indication: Hypothyroidism
     Route: 048
     Dates: start: 2022
  2. ARMOUR THYROID [Suspect]
     Active Substance: THYROID, PORCINE
     Indication: Hypothyroidism
     Route: 048
     Dates: start: 1992, end: 202201
  3. NEXIUM [Concomitant]
     Active Substance: ESOMEPRAZOLE MAGNESIUM
     Indication: Dyspepsia
  4. ZOLOFT [Concomitant]
     Active Substance: SERTRALINE HYDROCHLORIDE
     Indication: Depression
  5. ASPIRIN [Concomitant]
     Active Substance: ASPIRIN
     Indication: Cardiac disorder
  6. WELLBUTRIN [Concomitant]
     Active Substance: BUPROPION HYDROCHLORIDE
     Indication: Attention deficit hyperactivity disorder
  7. METOPROLOL [Concomitant]
     Active Substance: METOPROLOL
     Indication: Hypertension
  8. TOPAMAX [Concomitant]
     Active Substance: TOPIRAMATE
     Indication: Headache
  9. UBRELVY [Concomitant]
     Active Substance: UBROGEPANT
     Indication: Migraine
  10. SIMVASTATIN [Concomitant]
     Active Substance: SIMVASTATIN
     Indication: Blood cholesterol

REACTIONS (9)
  - Renal artery stent placement [Not Recovered/Not Resolved]
  - Joint swelling [Recovering/Resolving]
  - Dizziness [Recovered/Resolved]
  - Infection [Not Recovered/Not Resolved]
  - Fatigue [Recovered/Resolved]
  - Haematuria [Unknown]
  - Renal pain [Not Recovered/Not Resolved]
  - Hypertension [Recovering/Resolving]
  - Haemoglobin decreased [Unknown]

NARRATIVE: CASE EVENT DATE: 20220101
